FAERS Safety Report 5625728-7 (Version None)
Quarter: 2008Q1

REPORT INFORMATION
  Report Type: 
  Country: None (occurrence: None)
  Receive Date: 20080207
  Receipt Date: 20080207
  Transmission Date: 20080703
  Serious: Yes (Life-Threatening)
  Sender: FDA-Public Use
  Company Number: None

PATIENT
  Age: 36 Year
  Sex: Female
  Weight: 64.8644 kg

DRUGS (1)
  1. CHANTIX [Suspect]
     Indication: SMOKING CESSATION THERAPY
     Dosage: .5MG DAILY PO;  1MG DAILY PO;  1MG DAILY PO
     Route: 048
     Dates: start: 20071001

REACTIONS (10)
  - ANXIETY [None]
  - APATHY [None]
  - DEPRESSION [None]
  - DYSPNOEA [None]
  - HAEMORRHAGE [None]
  - LACERATION [None]
  - MOOD SWINGS [None]
  - PANIC ATTACK [None]
  - RASH GENERALISED [None]
  - TREMOR [None]
